FAERS Safety Report 18432582 (Version 1)
Quarter: 2020Q4

REPORT INFORMATION
  Report Type: Spontaneous
  Country: US (occurrence: US)
  Receive Date: 20201027
  Receipt Date: 20201027
  Transmission Date: 20210114
  Serious: Yes (Other)
  Sender: FDA-Public Use
  Company Number: US-PURDUE-USA-2020-0169181

PATIENT
  Sex: Male

DRUGS (3)
  1. OXYCONTIN [Suspect]
     Active Substance: OXYCODONE HYDROCHLORIDE
     Indication: PRODUCT USED FOR UNKNOWN INDICATION
     Dosage: UNK
     Route: 048
  2. DILAUDID [Suspect]
     Active Substance: HYDROMORPHONE HYDROCHLORIDE
     Indication: PRODUCT USED FOR UNKNOWN INDICATION
     Dosage: UNK
     Route: 048
  3. SUBOXONE [Suspect]
     Active Substance: BUPRENORPHINE HYDROCHLORIDE\NALOXONE HYDROCHLORIDE
     Indication: PRODUCT USED FOR UNKNOWN INDICATION
     Dosage: UNK
     Route: 065

REACTIONS (13)
  - Narcotic bowel syndrome [Unknown]
  - Developmental delay [Unknown]
  - Vomiting [Unknown]
  - Cardiac failure congestive [Unknown]
  - Intestinal pseudo-obstruction [Unknown]
  - Arrhythmia [Unknown]
  - Nausea [Unknown]
  - Impaired gastric emptying [Unknown]
  - Hypertrophic cardiomyopathy [Unknown]
  - Learning disability [Unknown]
  - Cardiac disorder [Unknown]
  - Drug dependence [Unknown]
  - Constipation [Unknown]
